FAERS Safety Report 7090719-9 (Version None)
Quarter: 2010Q4

REPORT INFORMATION
  Report Type: 
  Country: None (occurrence: None)
  Receive Date: 20101012
  Receipt Date: 20100305
  Transmission Date: 20110411
  Serious: Yes (Hospitalization)
  Sender: FDA-Public Use
  Company Number: 1000011009

PATIENT
  Age: 49 Year
  Sex: Female

DRUGS (4)
  1. LEXAPRO [Suspect]
     Indication: MAJOR DEPRESSION
     Dosage: 10 MG (10 MG, 1 IN 1 D), ORAL
     Route: 048
     Dates: start: 20090715, end: 20090811
  2. ALBUTEROL [Concomitant]
  3. VISTARIL [Concomitant]
  4. TRAZODONE [Concomitant]

REACTIONS (1)
  - HYPERSENSITIVITY [None]
